FAERS Safety Report 23830794 (Version 2)
Quarter: 2024Q2

REPORT INFORMATION
  Report Type: Spontaneous
  Country: DE (occurrence: DE)
  Receive Date: 20240508
  Receipt Date: 20240515
  Transmission Date: 20240716
  Serious: Yes (Other)
  Sender: FDA-Public Use
  Company Number: None

PATIENT
  Sex: Male

DRUGS (4)
  1. SERTRALINE [Suspect]
     Active Substance: SERTRALINE HYDROCHLORIDE
     Indication: Post-traumatic stress disorder
     Dosage: UNKNOWN
     Route: 065
     Dates: start: 202102, end: 20240126
  2. IBUPROFEN [Concomitant]
     Active Substance: IBUPROFEN
     Indication: Sciatica
     Dosage: UNKNOWN
     Route: 065
  3. RescueFlow [Concomitant]
     Indication: Restlessness
     Route: 048
  4. Spascupreel [Concomitant]
     Indication: Abdominal pain
     Dosage: AS NECESSARY
     Route: 065

REACTIONS (8)
  - Diarrhoea [Unknown]
  - Drug withdrawal syndrome [Unknown]
  - Musculoskeletal stiffness [Unknown]
  - Gait disturbance [Unknown]
  - Arrhythmia [Unknown]
  - Ocular discomfort [Unknown]
  - Dizziness [Unknown]
  - Insomnia [Unknown]
